FAERS Safety Report 8922293 (Version 1)
Quarter: 2012Q4

REPORT INFORMATION
  Report Type: Report from Study
  Country: CA (occurrence: CA)
  Receive Date: 20121123
  Receipt Date: 20121123
  Transmission Date: 20130627
  Serious: Yes (Other)
  Sender: FDA-Public Use
  Company Number: CA-JNJFOC-20121109014

PATIENT
  Sex: Female
  Weight: 55 kg

DRUGS (8)
  1. REMICADE [Suspect]
     Indication: RHEUMATOID ARTHRITIS
     Route: 042
     Dates: start: 20111216
  2. REMICADE [Suspect]
     Indication: CROHN^S DISEASE
     Route: 042
     Dates: start: 20111216
  3. IMURAN [Concomitant]
     Route: 065
  4. PANTOLOC [Concomitant]
     Route: 065
  5. SALOFALK [Concomitant]
     Route: 065
  6. B12 INJECTION [Concomitant]
     Route: 065
  7. ALL OTHER THERAPEUTICS [Concomitant]
     Route: 065
  8. RANITIDINE [Concomitant]
     Route: 065

REACTIONS (2)
  - Iritis [Not Recovered/Not Resolved]
  - Night sweats [Not Recovered/Not Resolved]
